FAERS Safety Report 7825595-7 (Version None)
Quarter: 2011Q4

REPORT INFORMATION
  Report Type: 
  Country: None (occurrence: None)
  Receive Date: 20111019
  Receipt Date: 20111018
  Transmission Date: 20120403
  Serious: Yes (Death, Other)
  Sender: FDA-Public Use
  Company Number: US-B.I. PHARMACEUTICALS,INC./RIDGEFIELD-2011-BP-22624BP

PATIENT
  Sex: Male
  Weight: 274.6 kg

DRUGS (11)
  1. LEVOTHYROXINE SODIUM [Concomitant]
  2. METOPROLOL TARTRATE [Concomitant]
  3. HYDROXYZINE [Concomitant]
  4. ALBUTEROL [Concomitant]
  5. ALDACTONE [Concomitant]
  6. SPIRIVA [Suspect]
     Indication: CHRONIC OBSTRUCTIVE PULMONARY DISEASE
     Dosage: 18 MCG
     Dates: start: 20110524
  7. NORCO [Concomitant]
  8. REQUIP [Concomitant]
  9. ZOLOFT [Concomitant]
  10. LANTUS [Concomitant]
  11. LISINOPRIL [Concomitant]

REACTIONS (6)
  - HEPATIC NEOPLASM MALIGNANT [None]
  - GENERALISED OEDEMA [None]
  - HEPATIC FAILURE [None]
  - HEPATITIS C [None]
  - ACUTE RESPIRATORY FAILURE [None]
  - OBESITY [None]
